FAERS Safety Report 4608024-6 (Version None)
Quarter: 2005Q2

REPORT INFORMATION
  Report Type: 
  Country: None (occurrence: None)
  Receive Date: 20050303
  Receipt Date: 20041209
  Transmission Date: 20051028
  Serious: No
  Sender: FDA-Public Use
  Company Number: 211006

PATIENT
  Age: 57 Year
  Sex: Female

DRUGS (9)
  1. XOLAIR [Suspect]
     Indication: ASTHMA
     Dosage: 375 MG, QW2, INTRAVENOUS
     Route: 042
     Dates: start: 20041102
  2. ADVAIR (SALMETEROL XINAFOATE, FLUTICASONE PROPIONATE) [Concomitant]
  3. ZYRTEC [Concomitant]
  4. SINGULAIR [Concomitant]
  5. NASACORT AQ (TRIAMCINOLONE ACETONIDE) [Concomitant]
  6. GUAIFENESIN (GUAIFNESIN) [Concomitant]
  7. CIPROFLOXACIN [Concomitant]
  8. TOBRAMYCIN [Concomitant]
  9. PREDNISONE [Concomitant]

REACTIONS (1)
  - RASH [None]
